FAERS Safety Report 25521364 (Version 2)
Quarter: 2025Q3

REPORT INFORMATION
  Report Type: Report from Study
  Country: US (occurrence: US)
  Receive Date: 20250705
  Receipt Date: 20250930
  Transmission Date: 20251020
  Serious: No
  Sender: TRAVERE THERAPEUTICS
  Company Number: US-TRAVERE-2025TVT00932

PATIENT
  Sex: Male

DRUGS (5)
  1. FILSPARI [Suspect]
     Active Substance: SPARSENTAN
     Indication: IgA nephropathy
     Route: 048
     Dates: start: 20250531
  2. FILSPARI [Suspect]
     Active Substance: SPARSENTAN
     Route: 048
  3. ELIQUIS [Concomitant]
     Active Substance: APIXABAN
  4. PAROXETINE [Concomitant]
     Active Substance: PAROXETINE
  5. ROSUVASTATIN [Concomitant]
     Active Substance: ROSUVASTATIN

REACTIONS (1)
  - Dizziness [Unknown]
